FAERS Safety Report 11354265 (Version 1)
Quarter: 2015Q3

REPORT INFORMATION
  Report Type: Spontaneous
  Country: US (occurrence: US)
  Receive Date: 20150807
  Receipt Date: 20150807
  Transmission Date: 20151125
  Serious: No
  Sender: FDA-Public Use
  Company Number: US-JNJFOC-20140702973

PATIENT
  Age: 21 Year
  Sex: Male
  Weight: 77.11 kg

DRUGS (1)
  1. MENS ROGAINE EXTRA STRENGTH [Suspect]
     Active Substance: MINOXIDIL
     Indication: HAIR GROWTH ABNORMAL
     Dosage: ENOUGH TO MOISTEN THE AREA ON THE SCALP
     Route: 061

REACTIONS (3)
  - Alopecia [Unknown]
  - Incorrect dose administered [Unknown]
  - Product physical consistency issue [Unknown]
